FAERS Safety Report 5676376-4 (Version None)
Quarter: 2008Q1

REPORT INFORMATION
  Report Type: 
  Country: None (occurrence: None)
  Receive Date: 20080321
  Receipt Date: 20080310
  Transmission Date: 20080703
  Serious: Yes (Hospitalization)
  Sender: FDA-Public Use
  Company Number: DE-PFIZER INC-2008023236

PATIENT
  Sex: Male

DRUGS (4)
  1. LYRICA [Suspect]
     Route: 048
  2. ATACAND HCT [Concomitant]
     Route: 048
  3. AMLODIPINE [Concomitant]
     Route: 048
  4. METOPROLOL TARTRATE [Concomitant]
     Route: 048

REACTIONS (4)
  - DRUG ERUPTION [None]
  - ECZEMA [None]
  - ERYTHEMA MULTIFORME [None]
  - JOINT EFFUSION [None]
